FAERS Safety Report 14331293 (Version 2)
Quarter: 2018Q1

REPORT INFORMATION
  Report Type: Spontaneous
  Country: JP (occurrence: JP)
  Receive Date: 20171228
  Receipt Date: 20180122
  Transmission Date: 20180509
  Serious: Yes (Other)
  Sender: FDA-Public Use
  Company Number: JP-009507513-1711JPN000735J

PATIENT
  Age: 67 Year
  Sex: Female

DRUGS (5)
  1. GASTER [Concomitant]
     Active Substance: FAMOTIDINE
     Dosage: 20 MG, BID
     Route: 048
     Dates: start: 20171030, end: 20171107
  2. GENTACIN [Concomitant]
     Active Substance: GENTAMICIN SULFATE
     Indication: MEDICAL PROCEDURE
     Dosage: UNK
     Route: 061
     Dates: start: 20171030
  3. ALPEED [Concomitant]
     Active Substance: EPINASTINE HYDROCHLORIDE
     Indication: MEDICAL PROCEDURE
     Dosage: 40 MG, UNK
     Route: 048
     Dates: start: 20171030
  4. STROMECTOL [Suspect]
     Active Substance: IVERMECTIN
     Indication: ACARODERMATITIS
     Dosage: 12 MG, UNK
     Route: 048
     Dates: start: 20171030
  5. KEIGAI-RENGYO-TO [Concomitant]
     Indication: ACARODERMATITIS
     Dosage: 7.5 G, TID
     Route: 048
     Dates: start: 20171030, end: 20171109

REACTIONS (2)
  - Folliculitis [Recovered/Resolved]
  - Pyelonephritis [Recovered/Resolved]

NARRATIVE: CASE EVENT DATE: 20171103
